FAERS Safety Report 7684224-6 (Version None)
Quarter: 2011Q3

REPORT INFORMATION
  Report Type: 
  Country: None (occurrence: None)
  Receive Date: 20110815
  Receipt Date: 20110809
  Transmission Date: 20111222
  Serious: Yes (Other)
  Sender: FDA-Public Use
  Company Number: FR-MERCK-1108USA01294

PATIENT
  Age: 82 Year

DRUGS (18)
  1. ALFUZOSIN HCL [Concomitant]
     Route: 048
     Dates: start: 20110409
  2. MODOPAR [Suspect]
     Route: 048
  3. ATARAX [Concomitant]
     Route: 048
     Dates: start: 20110413, end: 20110417
  4. INDAPAMIDE [Concomitant]
     Route: 048
     Dates: start: 20110428
  5. GLUCOPHAGE [Concomitant]
     Route: 048
     Dates: start: 20110412
  6. NEXIUM [Concomitant]
     Route: 048
     Dates: start: 20110403
  7. PROZAC [Concomitant]
     Route: 048
     Dates: start: 20110407, end: 20110412
  8. ASPIRIN [Suspect]
     Route: 048
     Dates: end: 20110403
  9. LEVOTHYROXINE SODIUM [Suspect]
     Route: 048
  10. TRAMADOL HCL [Suspect]
     Route: 048
     Dates: start: 20100603, end: 20110403
  11. GLUCOVANCE [Suspect]
     Route: 048
     Dates: end: 20110412
  12. JANUVIA [Suspect]
     Indication: TYPE 2 DIABETES MELLITUS
     Route: 048
     Dates: start: 20100422, end: 20110518
  13. ZESTRIL [Concomitant]
     Route: 048
     Dates: start: 20110412
  14. AMARYL [Concomitant]
     Route: 048
     Dates: start: 20110412
  15. BACTRIM [Concomitant]
     Route: 048
     Dates: start: 20110409, end: 20110416
  16. PRINZIDE [Suspect]
     Route: 048
     Dates: end: 20110411
  17. PANTOPRAZOLE SODIUM [Suspect]
     Route: 048
     Dates: end: 20110412
  18. LOVENOX [Concomitant]
     Route: 058
     Dates: start: 20110404

REACTIONS (1)
  - PANCREATITIS CHRONIC [None]
